FAERS Safety Report 8974872 (Version 1)
Quarter: 2012Q4

REPORT INFORMATION
  Report Type: 
  Country: DE (occurrence: DE)
  Receive Date: 20121219
  Receipt Date: 20121219
  Transmission Date: 20130627
  Serious: Yes (Death, Hospitalization, Other)
  Sender: FDA-Public Use
  Company Number: DE-BAXTER-2012BAX026914

PATIENT
  Age: 78 Year
  Sex: Male

DRUGS (2)
  1. DIANEAL PD4 GLUCOSE 1,36 % W/V [Suspect]
     Indication: CAPD
     Route: 033
  2. EXTRANEAL [Suspect]
     Indication: CAPD
     Route: 033

REACTIONS (6)
  - Septic shock [Fatal]
  - Multi-organ failure [Fatal]
  - Respiratory failure [Unknown]
  - Pain [Unknown]
  - Disorientation [Unknown]
  - Urine analysis abnormal [Unknown]
